FAERS Safety Report 19183067 (Version 2)
Quarter: 2021Q2

REPORT INFORMATION
  Report Type: Spontaneous
  Country: BR (occurrence: BR)
  Receive Date: 20210427
  Receipt Date: 20210429
  Transmission Date: 20210717
  Serious: Yes (Other)
  Sender: FDA-Public Use
  Company Number: BR-TEVA-2021-BR-1905803

PATIENT
  Age: 70 Year
  Sex: Female
  Weight: 83 kg

DRUGS (7)
  1. LIPITOR [Concomitant]
     Active Substance: ATORVASTATIN CALCIUM
     Dosage: 20 MILLIGRAM DAILY; AT NIGHT
  2. FRONTAL [Concomitant]
     Active Substance: ALPRAZOLAM
     Dosage: .5 DOSAGE FORMS DAILY; AT NIGHT
  3. ARADOIS [Concomitant]
     Active Substance: LOSARTAN POTASSIUM
  4. FIXARE [Concomitant]
  5. LEXAPRO [Concomitant]
     Active Substance: ESCITALOPRAM OXALATE
     Dosage: 15 MILLIGRAM DAILY;
  6. TEVAOXALI [Suspect]
     Active Substance: OXALIPLATIN
  7. REMERON [Concomitant]
     Active Substance: MIRTAZAPINE
     Dosage: 10 MILLIGRAM DAILY; AT NIGHT

REACTIONS (6)
  - Respiratory distress [Recovered/Resolved]
  - Lip oedema [Recovered/Resolved]
  - Blood pressure abnormal [Recovered/Resolved]
  - Anxiety [Recovered/Resolved]
  - Flushing [Recovered/Resolved]
  - Oxygen saturation decreased [Recovered/Resolved]

NARRATIVE: CASE EVENT DATE: 20210420
